FAERS Safety Report 6267073-5 (Version None)
Quarter: 2009Q3

REPORT INFORMATION
  Report Type: 
  Country: None (occurrence: None)
  Receive Date: 20090714
  Receipt Date: 20090610
  Transmission Date: 20100115
  Serious: No
  Sender: FDA-Public Use
  Company Number: US-BAYER-200922950NA

PATIENT
  Age: 39 Year
  Sex: Male

DRUGS (2)
  1. LEVITRA [Suspect]
     Indication: ERECTILE DYSFUNCTION
     Dosage: UNIT DOSE: 20 MG
  2. LEVITRA [Suspect]
     Dosage: UNIT DOSE: 20 MG

REACTIONS (2)
  - DRUG INTOLERANCE [None]
  - ERECTILE DYSFUNCTION [None]
